FAERS Safety Report 8428039-X (Version None)
Quarter: 2012Q2

REPORT INFORMATION
  Report Type: 
  Country: None (occurrence: None)
  Receive Date: 20120611
  Receipt Date: 20120604
  Transmission Date: 20120825
  Serious: Yes (Other)
  Sender: FDA-Public Use
  Company Number: BR-FRI-1000029862

PATIENT
  Age: 55 Year
  Sex: Female

DRUGS (2)
  1. FOSFOMYCIN [Suspect]
     Indication: CYSTITIS
     Route: 048
     Dates: start: 20120327, end: 20120327
  2. BACTRIM [Suspect]
     Indication: URINARY TRACT INFECTION
     Dates: start: 20120320, end: 20120326

REACTIONS (4)
  - OEDEMA PERIPHERAL [None]
  - RASH [None]
  - BURNING SENSATION [None]
  - SKIN ULCER [None]
